FAERS Safety Report 7387115-3 (Version None)
Quarter: 2011Q1

REPORT INFORMATION
  Report Type: 
  Country: None (occurrence: None)
  Receive Date: 20110331
  Receipt Date: 20100303
  Transmission Date: 20110831
  Serious: Yes (Hospitalization)
  Sender: FDA-Public Use
  Company Number: A0849003A

PATIENT
  Age: 27 Year
  Sex: Female
  Weight: 145 kg

DRUGS (1)
  1. AVANDIA [Suspect]
     Indication: DIABETES MELLITUS
     Dosage: 2MG PER DAY
     Route: 048
     Dates: start: 20031112

REACTIONS (3)
  - CARDIAC FAILURE CONGESTIVE [None]
  - PERIPARTUM CARDIOMYOPATHY [None]
  - MYOCARDIAL INFARCTION [None]
